FAERS Safety Report 25213736 (Version 2)
Quarter: 2025Q2

REPORT INFORMATION
  Report Type: Spontaneous
  Country: DE (occurrence: DE)
  Receive Date: 20250418
  Receipt Date: 20250529
  Transmission Date: 20250717
  Serious: Yes (Other)
  Sender: PFIZER
  Company Number: DE-PFIZER INC-202500077027

PATIENT
  Age: 29 Year
  Sex: Male
  Weight: 114 kg

DRUGS (1)
  1. HYMPAVZI [Suspect]
     Active Substance: MARSTACIMAB-HNCQ
     Indication: Haemophilia
     Dosage: 150 MG, WEEKLY
     Route: 058
     Dates: start: 20250307

REACTIONS (1)
  - Haemarthrosis [Recovered/Resolved]

NARRATIVE: CASE EVENT DATE: 20250404
